FAERS Safety Report 19759696 (Version 1)
Quarter: 2021Q3

REPORT INFORMATION
  Report Type: Spontaneous
  Country: CA (occurrence: CA)
  Receive Date: 20210830
  Receipt Date: 20210830
  Transmission Date: 20211014
  Serious: Yes (Hospitalization)
  Sender: FDA-Public Use
  Company Number: CA-AUROBINDO-AUR-APL-2021-036096

PATIENT
  Age: 79 Year
  Sex: Female

DRUGS (6)
  1. OZEMPIC [Suspect]
     Active Substance: SEMAGLUTIDE
     Indication: TYPE 2 DIABETES MELLITUS
     Dosage: 0.25 MILLIGRAM, EVERY WEEK
     Route: 058
  2. METHOTREXATE. [Concomitant]
     Active Substance: METHOTREXATE
     Indication: PRODUCT USED FOR UNKNOWN INDICATION
     Dosage: UNK
     Route: 037
  3. OZEMPIC [Suspect]
     Active Substance: SEMAGLUTIDE
     Dosage: 0.5 MILLIGRAM, EVERY WEEK
     Route: 058
  4. RAMIPRIL. [Concomitant]
     Active Substance: RAMIPRIL
     Indication: PRODUCT USED FOR UNKNOWN INDICATION
     Dosage: UNK
     Route: 065
  5. LANSOPRAZOLE. [Concomitant]
     Active Substance: LANSOPRAZOLE
     Indication: PRODUCT USED FOR UNKNOWN INDICATION
     Dosage: UNK
     Route: 065
  6. METFORMIN TABLET [Suspect]
     Active Substance: METFORMIN HYDROCHLORIDE
     Indication: TYPE 2 DIABETES MELLITUS
     Dosage: UNK
     Route: 065

REACTIONS (15)
  - Blood pressure systolic decreased [Unknown]
  - Chest discomfort [Unknown]
  - Decreased appetite [Unknown]
  - Back pain [Unknown]
  - Blood disorder [Unknown]
  - Muscle spasms [Unknown]
  - Malnutrition [Unknown]
  - Renal disorder [Unknown]
  - Cardiac discomfort [Unknown]
  - Dehydration [Unknown]
  - Headache [Unknown]
  - Presyncope [Unknown]
  - Tremor [Unknown]
  - Fatigue [Unknown]
  - Weight decreased [Unknown]
